FAERS Safety Report 7017850-8 (Version None)
Quarter: 2010Q3

REPORT INFORMATION
  Report Type: 
  Country: None (occurrence: None)
  Receive Date: 20100909
  Receipt Date: 20100630
  Transmission Date: 20110219
  Serious: No
  Sender: FDA-Public Use
  Company Number: 2010SP036794

PATIENT
  Sex: Male

DRUGS (4)
  1. SAPHRIS [Suspect]
     Indication: INSOMNIA
     Dosage: 5 MG;HS;SL
     Route: 060
     Dates: start: 20100624, end: 20100625
  2. LAMICTAL (CON.) [Concomitant]
  3. LUVOX (CON.) [Concomitant]
  4. DEXEDRINE (CON.) [Concomitant]

REACTIONS (12)
  - ANXIETY [None]
  - ARTHRALGIA [None]
  - DISTURBANCE IN ATTENTION [None]
  - DYSPNOEA [None]
  - FEELING ABNORMAL [None]
  - HYPOAESTHESIA ORAL [None]
  - INSOMNIA [None]
  - MYALGIA [None]
  - RESTLESS LEGS SYNDROME [None]
  - SEDATION [None]
  - SOMNOLENCE [None]
  - VISION BLURRED [None]
